FAERS Safety Report 19161594 (Version 2)
Quarter: 2021Q2

REPORT INFORMATION
  Report Type: Report from Study
  Country: US (occurrence: US)
  Receive Date: 20210421
  Receipt Date: 20210427
  Transmission Date: 20210717
  Serious: Yes (Death)
  Sender: FDA-Public Use
  Company Number: US-TAIHO ONCOLOGY  INC-EU-2021-01169

PATIENT
  Age: 62 Year
  Sex: Female
  Weight: 70.37 kg

DRUGS (2)
  1. LONSURF [Suspect]
     Active Substance: TIPIRACIL HYDROCHLORIDE\TRIFLURIDINE
     Indication: RECTAL CANCER
     Dosage: CYCLE UNKNOWN
     Route: 048
  2. STIVARGA [Concomitant]
     Active Substance: REGORAFENIB

REACTIONS (1)
  - Sepsis [Fatal]

NARRATIVE: CASE EVENT DATE: 20210414
